FAERS Safety Report 6282849-6 (Version None)
Quarter: 2009Q3

REPORT INFORMATION
  Report Type: 
  Country: None (occurrence: None)
  Receive Date: 20090724
  Receipt Date: 20090715
  Transmission Date: 20100115
  Serious: Yes (Hospitalization)
  Sender: FDA-Public Use
  Company Number: FR-ABBOTT-09P-056-0585581-00

PATIENT
  Sex: Male

DRUGS (5)
  1. DEPAKENE [Suspect]
     Indication: POST-TRAUMATIC EPILEPSY
     Route: 048
     Dates: start: 20081211, end: 20090223
  2. KEPPRA [Concomitant]
     Indication: POST-TRAUMATIC EPILEPSY
     Dosage: 2500 MG
     Route: 048
  3. URBANYL [Concomitant]
     Indication: ANXIETY
     Dosage: 10 MG
     Route: 048
  4. IMUREL [Concomitant]
     Indication: AUTOIMMUNE HEPATITIS
     Dosage: 25 MG
     Route: 048
  5. AMLOR [Concomitant]
     Indication: HYPERTENSION
     Dosage: 5 MG
     Route: 048

REACTIONS (2)
  - HEPATOCELLULAR INJURY [None]
  - MIXED LIVER INJURY [None]
